FAERS Safety Report 23553975 (Version 8)
Quarter: 2025Q1

REPORT INFORMATION
  Report Type: Report from Study
  Country: US (occurrence: US)
  Receive Date: 20240222
  Receipt Date: 20250319
  Transmission Date: 20250409
  Serious: Yes (Other)
  Sender: ABBVIE
  Company Number: US-ABBVIE-5646712

PATIENT
  Age: 52 Year
  Sex: Female
  Weight: 142.88 kg

DRUGS (4)
  1. HUMIRA [Suspect]
     Active Substance: ADALIMUMAB
     Indication: Psoriasis
     Dosage: CITRATE FREE  ?FORM STRENGTH: 40 MG
     Route: 058
     Dates: start: 20230627
  2. HUMIRA [Suspect]
     Active Substance: ADALIMUMAB
     Indication: Hidradenitis
  3. TAMSULOSIN [Concomitant]
     Active Substance: TAMSULOSIN
     Indication: Nephrolithiasis
  4. TYLENOL [Concomitant]
     Active Substance: ACETAMINOPHEN
     Indication: Pain

REACTIONS (20)
  - Nephrolithiasis [Not Recovered/Not Resolved]
  - Musculoskeletal stiffness [Not Recovered/Not Resolved]
  - Rotator cuff syndrome [Unknown]
  - Fatigue [Not Recovered/Not Resolved]
  - Arthralgia [Recovering/Resolving]
  - Knee operation [Not Recovered/Not Resolved]
  - Tremor [Not Recovered/Not Resolved]
  - Dental caries [Recovering/Resolving]
  - Pain [Recovered/Resolved]
  - Procedural pain [Not Recovered/Not Resolved]
  - Post procedural complication [Not Recovered/Not Resolved]
  - Tooth fracture [Not Recovered/Not Resolved]
  - Vitamin D abnormal [Unknown]
  - Eye disorder [Unknown]
  - Visual impairment [Unknown]
  - Blood glucose decreased [Not Recovered/Not Resolved]
  - Nerve compression [Not Recovered/Not Resolved]
  - Spinal disorder [Unknown]
  - Gingivitis [Unknown]
  - Depression [Unknown]

NARRATIVE: CASE EVENT DATE: 20240116
